FAERS Safety Report 6024043-X (Version None)
Quarter: 2008Q4

REPORT INFORMATION
  Report Type: 
  Country: None (occurrence: None)
  Receive Date: 20081230
  Receipt Date: 20081225
  Transmission Date: 20090506
  Serious: Yes (Hospitalization, Other)
  Sender: FDA-Public Use
  Company Number: JP-ASTRAZENECA-2008AP05485

PATIENT
  Age: 49 Year
  Sex: Female
  Weight: 52 kg

DRUGS (3)
  1. NOLVADEX [Suspect]
     Indication: BREAST CANCER
     Dosage: DOSE UNKNOWN
     Route: 048
     Dates: end: 20080321
  2. NOLVADEX [Suspect]
     Dosage: DOSE UNKNOWN
     Route: 048
     Dates: start: 20080513, end: 20080526
  3. ZOLADEX [Suspect]
     Indication: BREAST CANCER
     Route: 058
     Dates: start: 20080801

REACTIONS (2)
  - INTERSTITIAL LUNG DISEASE [None]
  - MUSCULOSKELETAL STIFFNESS [None]
